FAERS Safety Report 7412972-1 (Version None)
Quarter: 2011Q2

REPORT INFORMATION
  Report Type: 
  Country: None (occurrence: None)
  Receive Date: 20110413
  Receipt Date: 20110405
  Transmission Date: 20111010
  Serious: Yes (Other)
  Sender: FDA-Public Use
  Company Number: JP-MERCK-1101USA03571

PATIENT
  Age: 83 Year
  Sex: Female

DRUGS (3)
  1. FOSAMAX [Suspect]
     Indication: OSTEOPOROSIS
     Route: 048
     Dates: start: 20070625, end: 20091001
  2. D-ALPHA [Concomitant]
     Indication: OSTEOPOROSIS
     Route: 048
     Dates: start: 20031216
  3. FOSAMAX [Suspect]
     Route: 048
     Dates: start: 20091107, end: 20110126

REACTIONS (2)
  - OSTEOMYELITIS [None]
  - DIARRHOEA [None]
